FAERS Safety Report 19001818 (Version 1)
Quarter: 2021Q1

REPORT INFORMATION
  Report Type: Spontaneous
  Country: US (occurrence: US)
  Receive Date: 20210311
  Receipt Date: 20210311
  Transmission Date: 20210420
  Serious: Yes (Hospitalization)
  Sender: FDA-Public Use
  Company Number: None

PATIENT
  Age: 60 Year
  Sex: Female

DRUGS (22)
  1. LANSOPRAZOLE. [Concomitant]
     Active Substance: LANSOPRAZOLE
  2. ASPIRIN. [Concomitant]
     Active Substance: ASPIRIN
  3. METH OTREXATE [Concomitant]
  4. ENBREL [Suspect]
     Active Substance: ETANERCEPT
     Indication: POLYARTHRITIS
     Route: 058
     Dates: start: 20160507
  5. HUMALOG [Concomitant]
     Active Substance: INSULIN LISPRO
  6. LEXAPRO [Concomitant]
     Active Substance: ESCITALOPRAM OXALATE
  7. NITROFURANTN [Concomitant]
     Active Substance: NITROFURANTOIN
  8. METFORMIN [Concomitant]
     Active Substance: METFORMIN HYDROCHLORIDE
  9. V | CTOZA [Concomitant]
  10. FERROUS SULF [Concomitant]
     Active Substance: FERROUS SULFATE
  11. FENOFIBRATE. [Concomitant]
     Active Substance: FENOFIBRATE
  12. ALPRAZOLAM. [Concomitant]
     Active Substance: ALPRAZOLAM
  13. LISINOPRIL. [Concomitant]
     Active Substance: LISINOPRIL
  14. CYCLOBENZAPR [Concomitant]
     Active Substance: CYCLOBENZAPRINE
  15. FUROSEMIDE. [Concomitant]
     Active Substance: FUROSEMIDE
  16. ESCITALOPRAM [Concomitant]
     Active Substance: ESCITALOPRAM OXALATE
  17. WAL?ZYR (CETIRIZINE HYDROCHLORIDE) [Concomitant]
     Active Substance: CETIRIZINE HYDROCHLORIDE
  18. ROPINIROLE. [Concomitant]
     Active Substance: ROPINIROLE
  19. SIMVASTATIN. [Concomitant]
     Active Substance: SIMVASTATIN
  20. POTASSIUM [Concomitant]
     Active Substance: POTASSIUM
  21. FOLIC ACID. [Concomitant]
     Active Substance: FOLIC ACID
  22. AMLODIPINE [Concomitant]
     Active Substance: AMLODIPINE BESYLATE

REACTIONS (3)
  - Infection [None]
  - COVID-19 [None]
  - Therapy interrupted [None]
